FAERS Safety Report 7162554-4 (Version None)
Quarter: 2010Q4

REPORT INFORMATION
  Report Type: 
  Country: None (occurrence: None)
  Receive Date: 20101215
  Receipt Date: 20091120
  Transmission Date: 20110411
  Serious: Yes (Other)
  Sender: FDA-Public Use
  Company Number: AU-PFIZER INC-2009289364

PATIENT
  Age: 41 Year
  Sex: Male
  Weight: 86 kg

DRUGS (7)
  1. LYRICA [Suspect]
     Indication: NEURALGIA
     Dosage: 75 MG, 2X/DAY
     Route: 048
     Dates: start: 20081101, end: 20090501
  2. TRAMADOL HCL [Suspect]
     Indication: PAIN
     Dosage: 200 MG, 2X/DAY
     Route: 048
     Dates: start: 20080301
  3. ENDONE [Suspect]
     Indication: PAIN
     Dosage: 5 MG, AS NEEDED
     Route: 048
     Dates: start: 20080301, end: 20090501
  4. OXYCONTIN [Concomitant]
     Indication: PAIN
     Dosage: 100 MG, 2X/DAY
     Route: 048
     Dates: start: 20080301, end: 20090501
  5. RANITIDINE [Concomitant]
     Indication: PROPHYLAXIS AGAINST GASTROINTESTINAL ULCER
     Dosage: 150 MG, 2X/DAY
     Route: 048
     Dates: start: 20080301, end: 20090101
  6. CURAM [Concomitant]
     Indication: INFECTION
     Dosage: 1 TABLET (875MG/125MG) TWICE A DAY
     Route: 048
     Dates: start: 20080401, end: 20090101
  7. CIPROFLOXACIN [Concomitant]
     Indication: INFECTION
     Dosage: 750 MG, 2X/DAY
     Route: 048
     Dates: start: 20080401, end: 20090101

REACTIONS (9)
  - AFFECT LABILITY [None]
  - CHILLS [None]
  - DELUSION [None]
  - MOOD SWINGS [None]
  - NIGHTMARE [None]
  - PAIN [None]
  - PSYCHOTIC DISORDER [None]
  - PYREXIA [None]
  - SOMNAMBULISM [None]
